FAERS Safety Report 20727248 (Version 5)
Quarter: 2023Q1

REPORT INFORMATION
  Report Type: Report from Study
  Country: US (occurrence: US)
  Receive Date: 20220419
  Receipt Date: 20230210
  Transmission Date: 20230418
  Serious: Yes (Other)
  Sender: FDA-Public Use
  Company Number: US-NOVARTISTESTPH-NVSC2021US028273

PATIENT
  Sex: Female

DRUGS (2)
  1. PIQRAY [Suspect]
     Active Substance: ALPELISIB
     Indication: Product used for unknown indication
     Dosage: UNK
     Route: 065
  2. PIQRAY [Suspect]
     Active Substance: ALPELISIB
     Dosage: 200 MG (SOMETIMES EVERY DAY, SOMETIMES EVERY OTHER DAY)
     Route: 048

REACTIONS (4)
  - Cervix cancer metastatic [Unknown]
  - Urticaria [Unknown]
  - Hand deformity [Unknown]
  - Product dose omission issue [Unknown]
